FAERS Safety Report 7290416-0 (Version None)
Quarter: 2011Q1

REPORT INFORMATION
  Report Type: 
  Country: None (occurrence: None)
  Receive Date: 20110214
  Receipt Date: 20110204
  Transmission Date: 20110831
  Serious: Yes (Other)
  Sender: FDA-Public Use
  Company Number: US-JNJFOC-20110202107

PATIENT
  Age: 50 Year
  Sex: Male
  Weight: 86.18 kg

DRUGS (12)
  1. ULTRAM [Suspect]
     Indication: PANIC ATTACK
     Route: 048
  2. DIAZEPAM [Suspect]
     Indication: AMNESIA
     Route: 065
  3. NEURONTIN [Suspect]
     Indication: CONVULSION
     Route: 048
  4. PHENOBARBITAL TAB [Suspect]
     Indication: CONVULSION
     Route: 048
  5. DILANTIN [Suspect]
     Indication: EPILEPSY
     Route: 048
  6. DEPAKOTE [Suspect]
     Indication: HYPOXIA
     Route: 065
  7. PHENOBARBITAL TAB [Suspect]
     Indication: EPILEPSY
     Route: 048
  8. PAXIL [Suspect]
     Indication: AMNESIA
     Route: 065
  9. ULTRAM [Suspect]
     Indication: CONVULSION
     Route: 048
  10. DEPAKOTE [Suspect]
     Indication: BIPOLAR DISORDER
     Route: 065
  11. DILANTIN [Suspect]
     Indication: CONVULSION
     Route: 048
  12. ETHOSUXIMIDE [Suspect]
     Indication: AMNESIA
     Route: 065

REACTIONS (6)
  - CONVULSION [None]
  - PAIN [None]
  - AMNESIA [None]
  - PANIC ATTACK [None]
  - HEAD INJURY [None]
  - OFF LABEL USE [None]
